FAERS Safety Report 8863660 (Version 1)
Quarter: 2012Q4

REPORT INFORMATION
  Report Type: 
  Country: US (occurrence: US)
  Receive Date: 20121024
  Receipt Date: 20121024
  Transmission Date: 20130627
  Serious: No
  Sender: FDA-Public Use
  Company Number: US-AMGEN-USASP2011063440

PATIENT
  Sex: Male

DRUGS (12)
  1. ENBREL [Suspect]
     Indication: RHEUMATOID ARTHRITIS
     Dosage: 50 mg, qwk
     Dates: start: 20110916
  2. STALEVO [Concomitant]
     Dosage: 100 UNK, UNK
  3. SINEMET [Concomitant]
     Dosage: 100 mg, UNK
  4. MIRAPEX [Concomitant]
     Dosage: .375 mg, UNK
  5. CLONAZEPAM [Concomitant]
     Dosage: .5 mg, UNK
  6. AMANTADINE [Concomitant]
     Dosage: 100 mg, UNK
  7. FOLIC ACID [Concomitant]
     Dosage: 20 mg, UNK
  8. METHOTREXATE [Concomitant]
     Dosage: 2.5 mg, UNK
  9. MELOXICAM [Concomitant]
     Dosage: 7.5 mg, UNK
  10. PREDNISONE [Concomitant]
     Dosage: 1 mg, UNK
  11. FISH OIL [Concomitant]
  12. VITAMIN D3 [Concomitant]

REACTIONS (1)
  - Rash [Unknown]
